FAERS Safety Report 19450615 (Version 3)
Quarter: 2021Q3

REPORT INFORMATION
  Report Type: Spontaneous
  Country: GE (occurrence: GE)
  Receive Date: 20210622
  Receipt Date: 20210811
  Transmission Date: 20211014
  Serious: Yes (Death, Hospitalization)
  Sender: FDA-Public Use
  Company Number: GE-JNJFOC-20210647331

PATIENT
  Age: 82 Year
  Sex: Female

DRUGS (2)
  1. XARELTO [Suspect]
     Active Substance: RIVAROXABAN
     Indication: ARRHYTHMIA
  2. XARELTO [Suspect]
     Active Substance: RIVAROXABAN
     Indication: IMPLANTABLE DEFIBRILLATOR INSERTION
     Dosage: 20 MG, QD
     Route: 048
     Dates: start: 201806

REACTIONS (7)
  - Asthenia [Fatal]
  - Mobility decreased [Fatal]
  - Musculoskeletal disorder [Unknown]
  - Mental disorder [Fatal]
  - Post procedural infection [Unknown]
  - Cardiac arrest [Fatal]
  - Body temperature abnormal [Fatal]

NARRATIVE: CASE EVENT DATE: 20210611
